FAERS Safety Report 4367329-7 (Version None)
Quarter: 2004Q2

REPORT INFORMATION
  Report Type: 
  Country: None (occurrence: None)
  Receive Date: 20040528
  Receipt Date: 20040528
  Transmission Date: 20050107
  Serious: No
  Sender: FDA-Public Use
  Company Number: None

PATIENT
  Age: 53 Year
  Sex: Male

DRUGS (10)
  1. TORSEMIDE [Suspect]
     Indication: CARDIAC FAILURE CONGESTIVE
     Dosage: 1 TAB TWICE DAILY
     Dates: start: 20040401
  2. TRICOR [Concomitant]
  3. NORVASC [Concomitant]
  4. CLONIDINE HCL [Concomitant]
  5. FLOMAX [Concomitant]
  6. COREG [Concomitant]
  7. DIGITEK [Concomitant]
  8. POT CHL [Concomitant]
  9. CIALIS [Concomitant]
  10. LISINOPRIL AND HYDROCHLOROTHIAZIDE [Concomitant]

REACTIONS (2)
  - MICTURITION FREQUENCY DECREASED [None]
  - PHARMACEUTICAL PRODUCT COMPLAINT [None]
